FAERS Safety Report 8971020 (Version 1)
Quarter: 2012Q4

REPORT INFORMATION
  Report Type: 
  Country: US (occurrence: US)
  Receive Date: 20121218
  Receipt Date: 20121218
  Transmission Date: 20130627
  Serious: No
  Sender: FDA-Public Use
  Company Number: US-BRISTOL-MYERS SQUIBB COMPANY-17031287

PATIENT
  Age: 12 Year
  Sex: Male

DRUGS (3)
  1. ABILIFY [Suspect]
     Indication: AFFECTIVE DISORDER
     Dosage: Drug stopped on Dec11, resumed on 26Sep12 5mg, then 10mg 1oct12 reduced to 5mg 5Oct12. Doses:8
     Route: 048
  2. ABILIFY [Suspect]
     Indication: ATTENTION DEFICIT/HYPERACTIVITY DISORDER
     Dosage: Drug stopped on Dec11, resumed on 26Sep12 5mg, then 10mg 1oct12 reduced to 5mg 5Oct12. Doses:8
     Route: 048
  3. TOPAMAX [Suspect]
     Indication: AFFECTIVE DISORDER
     Dates: start: 20121004, end: 201210

REACTIONS (6)
  - Restlessness [Unknown]
  - Agitation [Unknown]
  - Influenza like illness [Unknown]
  - Somnolence [Unknown]
  - Nausea [Not Recovered/Not Resolved]
  - Vomiting [Not Recovered/Not Resolved]
